FAERS Safety Report 6899970-1 (Version None)
Quarter: 2010Q3

REPORT INFORMATION
  Report Type: 
  Country: None (occurrence: None)
  Receive Date: 20100803
  Receipt Date: 20100729
  Transmission Date: 20110219
  Serious: Yes (Death, Congenital Anomaly, Other)
  Sender: FDA-Public Use
  Company Number: CH-BRISTOL-MYERS SQUIBB COMPANY-15216799

PATIENT
  Sex: Male
  Weight: 2 kg

DRUGS (1)
  1. ABILIFY [Suspect]
     Route: 064
     Dates: start: 20090307, end: 20091010

REACTIONS (7)
  - FALLOT'S TETRALOGY [None]
  - HAEMOTHORAX [None]
  - HEART DISEASE CONGENITAL [None]
  - MULTIPLE CONGENITAL ABNORMALITIES [None]
  - PERICARDIAL HAEMORRHAGE [None]
  - POST PROCEDURAL HAEMORRHAGE [None]
  - PREMATURE BABY [None]
